FAERS Safety Report 7814294-3 (Version None)
Quarter: 2011Q4

REPORT INFORMATION
  Report Type: 
  Country: None (occurrence: None)
  Receive Date: 20111014
  Receipt Date: 20111010
  Transmission Date: 20120403
  Serious: Yes (Hospitalization)
  Sender: FDA-Public Use
  Company Number: IT-SANOFI-AVENTIS-2011SA062729

PATIENT
  Age: 80 Year
  Sex: Male
  Weight: 75 kg

DRUGS (11)
  1. DOCETAXEL [Suspect]
     Route: 042
     Dates: start: 20110805, end: 20110805
  2. TICLOPIDINE HCL [Concomitant]
     Route: 048
     Dates: start: 20020920
  3. FUROSEMIDE [Concomitant]
     Route: 048
     Dates: start: 20020920
  4. PREDNISONE [Suspect]
     Route: 048
     Dates: start: 20110805, end: 20110822
  5. DOCETAXEL [Suspect]
     Indication: PROSTATE CANCER
     Route: 042
     Dates: start: 20110601, end: 20110601
  6. NEUPOGEN [Concomitant]
     Indication: NEUTROPENIA
     Route: 058
     Dates: start: 20110808, end: 20110812
  7. BLINDED THERAPY [Suspect]
     Indication: PROSTATE CANCER
     Route: 048
     Dates: start: 20110601, end: 20110614
  8. PHENOBARBITAL TAB [Concomitant]
     Indication: PROPHYLAXIS
     Route: 048
     Dates: start: 20020920
  9. BLINDED THERAPY [Suspect]
     Route: 048
     Dates: start: 20110805, end: 20110818
  10. PREDNISONE [Suspect]
     Indication: PROSTATE CANCER
     Route: 048
     Dates: start: 20110601, end: 20110621
  11. LANSOPRAZOLE [Concomitant]
     Indication: PROPHYLAXIS
     Route: 048
     Dates: start: 20020920

REACTIONS (1)
  - TRANSIENT ISCHAEMIC ATTACK [None]
